FAERS Safety Report 11488384 (Version 1)
Quarter: 2015Q3

REPORT INFORMATION
  Report Type: Spontaneous
  Country: US (occurrence: None)
  Receive Date: 20150910
  Receipt Date: 20150910
  Transmission Date: 20151125
  Serious: Yes (Life-Threatening, Hospitalization, Other)
  Sender: FDA-Public Use
  Company Number: US-MDT-ADR-2015-01753

PATIENT
  Age: 49 Year
  Sex: Female

DRUGS (2)
  1. MORPHINE INTRATHECAL [Suspect]
     Active Substance: MORPHINE
  2. BACLOFEN INTRATHECAL [Suspect]
     Active Substance: BACLOFEN

REACTIONS (13)
  - Gait disturbance [None]
  - Device damage [None]
  - Medical device site erythema [None]
  - Pericardial effusion [None]
  - Insomnia [None]
  - Medical device site warmth [None]
  - Medical device site infection [None]
  - Neuropathy peripheral [None]
  - Implant site extravasation [None]
  - Performance status decreased [None]
  - Pyrexia [None]
  - Disease progression [None]
  - Mobility decreased [None]
